FAERS Safety Report 9602260 (Version 1)
Quarter: 2013Q4

REPORT INFORMATION
  Report Type: Spontaneous
  Country: GB (occurrence: None)
  Receive Date: 20131003
  Receipt Date: 20131003
  Transmission Date: 20140711
  Serious: Yes (Other)
  Sender: FDA-Public Use
  Company Number: KAD201309-001275

PATIENT
  Age: 62 Year
  Sex: Male

DRUGS (3)
  1. RIBAVIRIN (RIBAVIRIN) [Suspect]
     Indication: HEPATITIS
  2. INTERFERON ALFACON-1 (INTERFERON ALFACON-1) [Suspect]
     Indication: HEPATITIS
  3. TELAPREVIR (TELAPREVIR) [Suspect]
     Indication: HEPATITIS
     Dosage: TABLET, 1125 MG, THREE TIMES IN TWO DAYS

REACTIONS (1)
  - Renal failure acute [None]
